FAERS Safety Report 15724450 (Version 4)
Quarter: 2019Q4

REPORT INFORMATION
  Report Type: Report from Study
  Country: KW (occurrence: KW)
  Receive Date: 20181214
  Receipt Date: 20191106
  Transmission Date: 20200122
  Serious: Yes (Disabling, Other)
  Sender: FDA-Public Use
  Company Number: PHHY2018KW177433

PATIENT
  Age: 66 Year
  Sex: Female

DRUGS (3)
  1. FULVESTRANT. [Suspect]
     Active Substance: FULVESTRANT
     Indication: PRODUCT USED FOR UNKNOWN INDICATION
     Dosage: UNK
     Route: 065
     Dates: start: 2018
  2. KISQALI [Suspect]
     Active Substance: RIBOCICLIB
     Indication: BREAST CANCER METASTATIC
     Dosage: 600 MG, QD
     Route: 048
     Dates: start: 20181125
  3. KISQALI [Suspect]
     Active Substance: RIBOCICLIB
     Dosage: 400 MG, QD
     Route: 048
     Dates: start: 20190102

REACTIONS (10)
  - Fatigue [Unknown]
  - Asthenia [Unknown]
  - Hyperhidrosis [Unknown]
  - Drug intolerance [Unknown]
  - Mobility decreased [Unknown]
  - Hypertension [Unknown]
  - Asthma [Unknown]
  - Dizziness [Unknown]
  - Dyspnoea [Unknown]
  - Dysphonia [Not Recovered/Not Resolved]

NARRATIVE: CASE EVENT DATE: 201812
